FAERS Safety Report 21494951 (Version 1)
Quarter: 2022Q4

REPORT INFORMATION
  Report Type: Spontaneous
  Country: US (occurrence: US)
  Receive Date: 20221022
  Receipt Date: 20221022
  Transmission Date: 20230112
  Serious: No
  Sender: FDA-Public Use
  Company Number: US-CELLTRION INC.-2022US004472

PATIENT

DRUGS (2)
  1. INFLECTRA [Suspect]
     Active Substance: INFLIXIMAB-DYYB
     Indication: Crohn^s disease
     Dosage: FIRST INFUSION: INFUSION AT A RATE OF 125ML/HR
  2. INFLECTRA [Suspect]
     Active Substance: INFLIXIMAB-DYYB
     Dosage: SECOND INFUSION: 7 ML (INFUSION AT A RATE OF 125ML/HR)

REACTIONS (5)
  - Anxiety [Unknown]
  - Hyperhidrosis [Unknown]
  - Erythema [Unknown]
  - Diarrhoea [Unknown]
  - Chest discomfort [Unknown]
